FAERS Safety Report 8094491-5 (Version None)
Quarter: 2012Q1

REPORT INFORMATION
  Report Type: 
  Country: None (occurrence: None)
  Receive Date: 20120131
  Receipt Date: 20120124
  Transmission Date: 20120608
  Serious: Yes (Other)
  Sender: FDA-Public Use
  Company Number: US-PFIZER INC-2012019897

PATIENT
  Age: 86 Year
  Sex: Female
  Weight: 45.351 kg

DRUGS (4)
  1. CELEBREX [Suspect]
     Indication: PAIN IN EXTREMITY
     Dosage: 10 MG, UNK
     Route: 048
     Dates: start: 20111101, end: 20120123
  2. PREDNISONE [Concomitant]
     Dosage: UNK
  3. CELEBREX [Suspect]
  4. ACETYLSALICYLIC ACID [Concomitant]
     Dosage: UNK

REACTIONS (4)
  - DRUG INEFFECTIVE [None]
  - ROCKY MOUNTAIN SPOTTED FEVER [None]
  - OEDEMA PERIPHERAL [None]
  - C-REACTIVE PROTEIN INCREASED [None]
